FAERS Safety Report 9703950 (Version 1)
Quarter: 2013Q4

REPORT INFORMATION
  Report Type: Report from Study
  Country: US (occurrence: US)
  Receive Date: 20131122
  Receipt Date: 20131122
  Transmission Date: 20140711
  Serious: Yes (Other)
  Sender: FDA-Public Use
  Company Number: US-BAYER-2013-141710

PATIENT
  Age: 72 Year
  Sex: Female

DRUGS (1)
  1. STIVARGA [Suspect]
     Indication: PRODUCT USED FOR UNKNOWN INDICATION
     Dosage: DAILY DOSE 160 MG (4X40MG)
     Route: 048

REACTIONS (2)
  - Dizziness [None]
  - Asthenia [None]
